FAERS Safety Report 9103573 (Version 1)
Quarter: 2013Q1

REPORT INFORMATION
  Report Type: Spontaneous
  Country: US (occurrence: US)
  Receive Date: 20130218
  Receipt Date: 20130218
  Transmission Date: 20140127
  Serious: Yes (Hospitalization)
  Sender: FDA-Public Use
  Company Number: US-BAYER-2013-020372

PATIENT
  Age: 23 Year
  Sex: Female
  Weight: 114.29 kg

DRUGS (3)
  1. OCELLA [Suspect]
     Indication: CONTRACEPTION
     Dosage: UNK
     Dates: start: 20090424, end: 20090514
  2. NSAID^S [Concomitant]
     Dosage: PRN
  3. ANTIBIOTICS [Concomitant]
     Dosage: PRN

REACTIONS (3)
  - Pulmonary embolism [Recovered/Resolved]
  - Chest pain [Recovered/Resolved]
  - Dyspnoea [Recovered/Resolved]
